FAERS Safety Report 20154084 (Version 1)
Quarter: 2021Q4

REPORT INFORMATION
  Report Type: Spontaneous
  Country: US (occurrence: None)
  Receive Date: 20211207
  Receipt Date: 20211207
  Transmission Date: 20220303
  Serious: No
  Sender: FDA-Public Use
  Company Number: 2021A816743

PATIENT
  Sex: Female

DRUGS (1)
  1. PULMICORT FLEXHALER [Suspect]
     Active Substance: BUDESONIDE
     Indication: Asthma
     Route: 055

REACTIONS (6)
  - Anxiety [Unknown]
  - Dysphonia [Unknown]
  - Dyspnoea [Unknown]
  - Device defective [Unknown]
  - Wrong technique in device usage process [Unknown]
  - Device ineffective [Unknown]
